FAERS Safety Report 18875193 (Version 1)
Quarter: 2021Q1

REPORT INFORMATION
  Report Type: Spontaneous
  Country: AU (occurrence: AU)
  Receive Date: 20210211
  Receipt Date: 20210211
  Transmission Date: 20210420
  Serious: Yes (Death, Other)
  Sender: FDA-Public Use
  Company Number: AU-TEVA-2021-AU-1878435

PATIENT

DRUGS (8)
  1. ISONIAZID. [Interacting]
     Active Substance: ISONIAZID
     Route: 065
  2. OMEPRAZOLE. [Suspect]
     Active Substance: OMEPRAZOLE
     Route: 065
  3. TENOFOVIR [Interacting]
     Active Substance: TENOFOVIR
     Route: 065
  4. LAMIVUDINE. [Interacting]
     Active Substance: LAMIVUDINE
     Route: 065
  5. TRIMETOPRIM [Interacting]
     Active Substance: TRIMETHOPRIM
     Route: 065
  6. NEVIRAPINE. [Interacting]
     Active Substance: NEVIRAPINE
     Route: 065
  7. SULFAMETHOXAZOLE [Interacting]
     Active Substance: SULFAMETHOXAZOLE
     Route: 065
  8. METOCLOPRAMIDE. [Interacting]
     Active Substance: METOCLOPRAMIDE
     Route: 065

REACTIONS (2)
  - Hepatotoxicity [Fatal]
  - Drug interaction [Fatal]
